FAERS Safety Report 15763145 (Version 1)
Quarter: 2018Q4

REPORT INFORMATION
  Report Type: Spontaneous
  Country: TR (occurrence: TR)
  Receive Date: 20181226
  Receipt Date: 20181226
  Transmission Date: 20190205
  Serious: Yes (Other)
  Sender: FDA-Public Use
  Company Number: TR-LUPIN PHARMACEUTICALS INC.-2018-09032

PATIENT
  Age: 61 Year
  Sex: Male

DRUGS (7)
  1. DULOXETINE. [Suspect]
     Active Substance: DULOXETINE
     Indication: SOMATIC SYMPTOM DISORDER
     Dosage: 60 MG, QD
     Route: 065
  2. DULOXETINE. [Suspect]
     Active Substance: DULOXETINE
     Indication: DEPRESSION
     Dosage: 30 MG, QD
     Route: 065
  3. DULOXETINE. [Suspect]
     Active Substance: DULOXETINE
     Dosage: 30 MG, QD
     Route: 065
  4. ESCITALOPRAM [Concomitant]
     Active Substance: ESCITALOPRAM OXALATE
     Indication: DEPRESSION
     Dosage: 5 MG, QD
     Route: 065
  5. ESCITALOPRAM [Concomitant]
     Active Substance: ESCITALOPRAM OXALATE
     Indication: SOMATIC SYMPTOM DISORDER
     Dosage: 15 MG, QD
     Route: 065
  6. SERTRALINE [Suspect]
     Active Substance: SERTRALINE HYDROCHLORIDE
     Indication: DEPRESSION
     Dosage: 100 MG, QD
     Route: 065
  7. SERTRALINE [Suspect]
     Active Substance: SERTRALINE HYDROCHLORIDE
     Indication: SOMATIC SYMPTOM DISORDER

REACTIONS (3)
  - Pain [Unknown]
  - Retrograde ejaculation [Recovered/Resolved]
  - Fatigue [Unknown]
